FAERS Safety Report 8308941-X (Version None)
Quarter: 2012Q2

REPORT INFORMATION
  Report Type: 
  Country: None (occurrence: None)
  Receive Date: 20120424
  Receipt Date: 20120314
  Transmission Date: 20120825
  Serious: No
  Sender: FDA-Public Use
  Company Number: US-B.I. PHARMACEUTICALS,INC./RIDGEFIELD-2011-BP-14704BP

PATIENT
  Age: 87 Year
  Sex: Male

DRUGS (6)
  1. DIAZIDE [Concomitant]
     Indication: HYPERTENSION
  2. LOSARTAN [Concomitant]
     Indication: HYPERTENSION
  3. PRADAXA [Suspect]
     Indication: ATRIAL FIBRILLATION
     Dosage: 300 MG
     Route: 048
     Dates: start: 20110401, end: 20110401
  4. PRADAXA [Suspect]
     Dosage: 150 MG
     Dates: start: 20110512
  5. AMLODIPINE [Concomitant]
     Indication: HYPERTENSION
  6. METOPROLOL TARTRATE [Concomitant]
     Indication: ATRIAL FIBRILLATION

REACTIONS (8)
  - DECREASED APPETITE [None]
  - HICCUPS [None]
  - NAUSEA [None]
  - MUSCLE SPASMS [None]
  - ABDOMINAL DISCOMFORT [None]
  - GASTROOESOPHAGEAL REFLUX DISEASE [None]
  - ASTHENIA [None]
  - WEIGHT DECREASED [None]
